FAERS Safety Report 20666657 (Version 1)
Quarter: 2022Q2

REPORT INFORMATION
  Report Type: Spontaneous
  Country: GB (occurrence: GB)
  Receive Date: 20220403
  Receipt Date: 20220403
  Transmission Date: 20220721
  Serious: Yes (Other)
  Sender: FDA-Public Use
  Company Number: GB-MHRA-TPP37289685C4531452YC1647617110826

PATIENT
  Age: 86 Year
  Sex: Female
  Weight: 44 kg

DRUGS (12)
  1. NITROFURANTOIN [Suspect]
     Active Substance: NITROFURANTOIN
     Indication: Ill-defined disorder
     Dosage: UNK
     Route: 065
     Dates: start: 20220318
  2. ALENDRONIC ACID [Concomitant]
     Active Substance: ALENDRONIC ACID
     Indication: Ill-defined disorder
     Dosage: UNK (TAKE ONE WEEKLY TO STRENGTHEN BONES OR BONE PRO...)
     Route: 065
     Dates: start: 20211214
  3. CALCEOS [Concomitant]
     Active Substance: CALCIUM CARBONATE\CHOLECALCIFEROL
     Indication: Ill-defined disorder
     Dosage: UNK (ONE TWICE A DAY FOR BONES)
     Route: 065
     Dates: start: 20211214, end: 20220221
  4. CHOLECALCIFEROL [Concomitant]
     Active Substance: CHOLECALCIFEROL
     Indication: Ill-defined disorder
     Dosage: UNK (TAKE ONE DAILY)
     Route: 065
     Dates: start: 20220221
  5. Conotrane [Concomitant]
     Indication: Ill-defined disorder
     Dosage: UNK (APPLY AS NEEDED)
     Route: 065
     Dates: start: 20220307, end: 20220314
  6. POLYETHYLENE GLYCOL 3350\POTASSIUM CHLORIDE\SODIUM BICARBONATE\SODIUM [Concomitant]
     Active Substance: POLYETHYLENE GLYCOL 3350\POTASSIUM CHLORIDE\SODIUM BICARBONATE\SODIUM CHLORIDE
     Indication: Ill-defined disorder
     Dosage: UNK (1-2 SACHETS TWICE DAILY AS REQUIRED)
     Route: 065
     Dates: start: 20220221
  7. MIRTAZAPINE [Concomitant]
     Active Substance: MIRTAZAPINE
     Indication: Ill-defined disorder
     Dosage: UNK (TAKE ONE AT NIGHT)
     Route: 065
     Dates: start: 20211214, end: 20220104
  8. OMEPRAZOLE [Concomitant]
     Active Substance: OMEPRAZOLE
     Indication: Ill-defined disorder
     Dosage: UNK (TAKE ONE DAILY AS REQUIRED)
     Route: 065
     Dates: start: 20211214, end: 20220104
  9. ACETAMINOPHEN [Concomitant]
     Active Substance: ACETAMINOPHEN
     Indication: Ill-defined disorder
     Dosage: UNK (TAKE 1 OR 2 4 TIMES/DAY)
     Route: 065
     Dates: start: 20220308
  10. SENNA [Concomitant]
     Active Substance: SENNA LEAF\SENNOSIDES\SENNOSIDES A AND B
     Indication: Ill-defined disorder
     Dosage: UNK (TAKE 1 OR 2 AT NIGHT)
     Route: 065
     Dates: start: 20220315
  11. SERTRALINE [Concomitant]
     Active Substance: SERTRALINE HYDROCHLORIDE
     Indication: Ill-defined disorder
     Dosage: UNK (TAKE 1 A DAY)
     Route: 065
     Dates: start: 20220104
  12. TRAVOPROST [Concomitant]
     Active Substance: TRAVOPROST
     Indication: Ill-defined disorder
     Dosage: UNK (ONE DROP ONCE DAILY AS ADVISED BY OPHTHALMOLOGIST)
     Route: 065
     Dates: start: 20211214

REACTIONS (1)
  - Drug intolerance [Recovered/Resolved]

NARRATIVE: CASE EVENT DATE: 20220318
